FAERS Safety Report 10016692 (Version 2)
Quarter: 2014Q2

REPORT INFORMATION
  Report Type: Spontaneous
  Country: PT (occurrence: PT)
  Receive Date: 20140318
  Receipt Date: 20140604
  Transmission Date: 20141212
  Serious: Yes (Other)
  Sender: FDA-Public Use
  Company Number: PT-ROCHE-1362919

PATIENT
  Age: 69 Year
  Sex: 0

DRUGS (2)
  1. TRASTUZUMAB [Suspect]
     Indication: PRODUCT USED FOR UNKNOWN INDICATION
     Dosage: FOR 4 SESSIONS.
     Route: 042
  2. TRASTUZUMAB [Suspect]
     Indication: PRODUCT USED FOR UNKNOWN INDICATION
     Dosage: FOR 10 SESSSIONS.
     Route: 058

REACTIONS (2)
  - Hyperglycaemia [Unknown]
  - Fatigue [Unknown]
